FAERS Safety Report 6198521-7 (Version None)
Quarter: 2009Q2

REPORT INFORMATION
  Report Type: 
  Country: None (occurrence: None)
  Receive Date: 20090521
  Receipt Date: 20090514
  Transmission Date: 20091009
  Serious: Yes (Other)
  Sender: FDA-Public Use
  Company Number: PHEH2008US03999

PATIENT
  Sex: Male

DRUGS (5)
  1. ZOMETA [Suspect]
     Indication: MULTIPLE MYELOMA
  2. LORTAB [Concomitant]
  3. DOXYCYCLINE [Concomitant]
  4. PERIDEX [Concomitant]
  5. CLEOCIN [Concomitant]

REACTIONS (34)
  - ANXIETY [None]
  - BONE DEBRIDEMENT [None]
  - BONE DISORDER [None]
  - BONE SWELLING [None]
  - DENTAL CARIES [None]
  - DENTAL OPERATION [None]
  - EMOTIONAL DISTRESS [None]
  - FISTULA DISCHARGE [None]
  - HAEMANGIOMA [None]
  - HEADACHE [None]
  - INDURATION [None]
  - INFECTION [None]
  - INJURY [None]
  - INTERVERTEBRAL DISC DEGENERATION [None]
  - MASS [None]
  - MUSCLE TIGHTNESS [None]
  - ORAL SURGERY [None]
  - OSTEONECROSIS [None]
  - OSTEORADIONECROSIS [None]
  - PAIN [None]
  - PAIN IN JAW [None]
  - PANCREATITIS [None]
  - PAROTITIS [None]
  - PHYSICAL DISABILITY [None]
  - PLASMACYTOMA [None]
  - RENAL CYST [None]
  - SCAR [None]
  - SINUSITIS [None]
  - SPINAL OSTEOARTHRITIS [None]
  - TONGUE INJURY [None]
  - TOOTH ABSCESS [None]
  - TOOTH EXTRACTION [None]
  - TOOTHACHE [None]
  - TRISMUS [None]
